FAERS Safety Report 7099941-9 (Version None)
Quarter: 2010Q4

REPORT INFORMATION
  Report Type: 
  Country: None (occurrence: None)
  Receive Date: 20101104
  Receipt Date: 20101022
  Transmission Date: 20110411
  Serious: Yes (Hospitalization)
  Sender: FDA-Public Use
  Company Number: 2009AL000408

PATIENT
  Age: 57 Year
  Sex: Female
  Weight: 71.3 kg

DRUGS (11)
  1. PRALATREXATE (PRALATREXATE) [Suspect]
     Indication: T-CELL LYMPHOMA
     Dosage: 15 MG/M**2;QOW ;IV
     Route: 042
     Dates: start: 20090928
  2. GEMCITABINE [Suspect]
     Indication: T-CELL LYMPHOMA
     Dosage: 600 MG/M**2;QOW;IV
     Route: 042
     Dates: start: 20090928
  3. CANDESARTAN [Concomitant]
  4. MULTI-VITAMINS [Concomitant]
  5. PROPOXYPHENE HYDROCHLORIDE [Concomitant]
  6. CALCIPOTRIENE [Concomitant]
  7. EUCERIN /01160201/ [Concomitant]
  8. FOLIC ACID [Concomitant]
  9. METAMUCIL /01430601/ [Concomitant]
  10. PANTOPRAZOLE [Concomitant]
  11. CYANOCOBALAMIN [Concomitant]

REACTIONS (7)
  - DYSPNOEA [None]
  - GASTROOESOPHAGEAL REFLUX DISEASE [None]
  - LYMPHADENOPATHY MEDIASTINAL [None]
  - MALIGNANT NEOPLASM PROGRESSION [None]
  - MUCOSAL INFLAMMATION [None]
  - NON-CARDIAC CHEST PAIN [None]
  - PYREXIA [None]
